FAERS Safety Report 10396643 (Version 1)
Quarter: 2014Q1

REPORT INFORMATION
  Report Type: Spontaneous
  Country: US (occurrence: None)
  Receive Date: 20130815
  Receipt Date: 20130815
  Transmission Date: 20141002
  Serious: No
  Sender: FDA-Public Use
  Company Number: ADR-2013-00452

PATIENT
  Age: 36 Year
  Sex: Female

DRUGS (1)
  1. LIORESAL INTRATHECAL (BACLOFEN INJECTION) 2000.0 MCG/ML [Suspect]
     Indication: MUSCLE SPASTICITY

REACTIONS (5)
  - White blood cell count increased [None]
  - Implant site infection [None]
  - Implant site pain [None]
  - Neck pain [None]
  - Back pain [None]
